FAERS Safety Report 19467298 (Version 1)
Quarter: 2021Q2

REPORT INFORMATION
  Report Type: Spontaneous
  Country: US (occurrence: US)
  Receive Date: 20210625
  Receipt Date: 20210625
  Transmission Date: 20210717
  Serious: No
  Sender: FDA-Public Use
  Company Number: None

PATIENT
  Sex: Female
  Weight: 72 kg

DRUGS (6)
  1. PYRIDOSTIGMINE [Suspect]
     Active Substance: PYRIDOSTIGMINE
     Indication: MYASTHENIA GRAVIS
     Dosage: ?          OTHER FREQUENCY:EVERY 4 HOURS;?
     Route: 048
  2. IVIG 400MG/KG [Concomitant]
  3. NORTRIPTYLINE 25MG [Concomitant]
     Active Substance: NORTRIPTYLINE
  4. MESTINON 60MG [Concomitant]
  5. MESTINON ER 180MG [Concomitant]
  6. OXYCODONE 15MG [Concomitant]
     Active Substance: OXYCODONE

REACTIONS (3)
  - Uterine haemorrhage [None]
  - Diarrhoea [None]
  - Product substitution issue [None]
